FAERS Safety Report 20156938 (Version 2)
Quarter: 2021Q4

REPORT INFORMATION
  Report Type: Spontaneous
  Country: CH (occurrence: CH)
  Receive Date: 20211207
  Receipt Date: 20211223
  Transmission Date: 20220303
  Serious: Yes (Other)
  Sender: FDA-Public Use
  Company Number: CH-009507513-2112CHE001205

PATIENT
  Age: 72 Year
  Sex: Female

DRUGS (6)
  1. PEMBROLIZUMAB [Suspect]
     Active Substance: PEMBROLIZUMAB
     Indication: Metastatic neoplasm
     Dosage: 4X
     Dates: start: 202005, end: 2020
  2. PEMBROLIZUMAB [Suspect]
     Active Substance: PEMBROLIZUMAB
     Dosage: 2X
     Dates: start: 2020, end: 202008
  3. CARBOPLATIN [Suspect]
     Active Substance: CARBOPLATIN
     Indication: Metastatic neoplasm
     Dosage: 4X
     Dates: start: 202005, end: 202008
  4. CARBOPLATIN [Suspect]
     Active Substance: CARBOPLATIN
     Dosage: LOW DOSE
     Dates: start: 202009, end: 202011
  5. PEMETREXED [Suspect]
     Active Substance: PEMETREXED
     Indication: Metastatic neoplasm
     Dosage: 4X
     Dates: start: 202005, end: 2020
  6. PEMETREXED [Suspect]
     Active Substance: PEMETREXED
     Dosage: 2X
     Dates: start: 2020, end: 202008

REACTIONS (2)
  - Malignant neoplasm progression [Unknown]
  - Therapy partial responder [Unknown]

NARRATIVE: CASE EVENT DATE: 20200101
